FAERS Safety Report 6405277-9 (Version None)
Quarter: 2009Q4

REPORT INFORMATION
  Report Type: 
  Country: None (occurrence: None)
  Receive Date: 20091016
  Receipt Date: 20091016
  Transmission Date: 20100525
  Serious: No
  Sender: FDA-Public Use
  Company Number: None

PATIENT
  Age: 61 Year
  Sex: Female
  Weight: 70.3075 kg

DRUGS (2)
  1. ATENOLOL [Suspect]
     Indication: BLOOD PRESSURE
     Dosage: 1/2 TWICE A DAY
     Dates: start: 20090909
  2. ATENOLOL [Suspect]
     Indication: BLOOD PRESSURE
     Dosage: 1/2 TWICE A DAY
     Dates: start: 20090912

REACTIONS (3)
  - ARTHRALGIA [None]
  - PRURITUS [None]
  - RASH [None]
